FAERS Safety Report 17148815 (Version 1)
Quarter: 2019Q4

REPORT INFORMATION
  Report Type: Spontaneous
  Country: US (occurrence: US)
  Receive Date: 20191213
  Receipt Date: 20191213
  Transmission Date: 20200122
  Serious: No
  Sender: FDA-Public Use
  Company Number: US-UCBSA-2015039996

PATIENT
  Age: 40 Year
  Sex: Female
  Weight: 135 kg

DRUGS (4)
  1. KEPPRA [Suspect]
     Active Substance: LEVETIRACETAM
     Indication: SEIZURE
     Dosage: 8000 MG DAILY (3 X 9 DAY)
     Route: 048
     Dates: start: 2000
  2. FOLIC ACID. [Concomitant]
     Active Substance: FOLIC ACID
     Indication: PREGNANCY
     Dosage: 1 MG, ONCE DAILY (QD)
     Route: 048
     Dates: start: 1992
  3. TRANXENE [Concomitant]
     Active Substance: CLORAZEPATE DIPOTASSIUM
     Indication: SEIZURE
     Dosage: 30 MG DAILY/ 3 X 9 DAY
     Route: 048
     Dates: start: 2003
  4. CARBATROL [Concomitant]
     Active Substance: CARBAMAZEPINE
     Indication: SEIZURE
     Dosage: 1800 A DAY/ 3 X 9 DAAY
     Route: 048
     Dates: start: 1998

REACTIONS (5)
  - Product dose omission [Unknown]
  - Overdose [Unknown]
  - Seizure [Recovered/Resolved]
  - Malaise [Unknown]
  - Off label use [Unknown]

NARRATIVE: CASE EVENT DATE: 2000
